FAERS Safety Report 14342075 (Version 1)
Quarter: 2018Q1

REPORT INFORMATION
  Report Type: Spontaneous
  Country: US (occurrence: US)
  Receive Date: 20180102
  Receipt Date: 20180102
  Transmission Date: 20180509
  Serious: No
  Sender: FDA-Public Use
  Company Number: US-INCYTE CORPORATION-2017IN011089

PATIENT

DRUGS (1)
  1. JAKAFI [Suspect]
     Active Substance: RUXOLITINIB
     Indication: WHITE BLOOD CELL COUNT INCREASED
     Dosage: 20 MG, AND 15 MG, UNK
     Route: 048
     Dates: start: 20170927

REACTIONS (1)
  - Off label use [Unknown]
